FAERS Safety Report 14263812 (Version 5)
Quarter: 2020Q3

REPORT INFORMATION
  Report Type: Report from Study
  Country: US (occurrence: US)
  Receive Date: 20171208
  Receipt Date: 20200922
  Transmission Date: 20201104
  Serious: Yes (Other)
  Sender: FDA-Public Use
  Company Number: US-ROCHE-2032121

PATIENT

DRUGS (3)
  1. BEVACIZUMAB. [Suspect]
     Active Substance: BEVACIZUMAB
     Indication: GENITAL NEOPLASM MALIGNANT FEMALE
     Dosage: ON DAYS 1 AND 15
     Route: 042
     Dates: start: 20171102
  2. PACLITAXEL. [Suspect]
     Active Substance: PACLITAXEL
     Indication: GENITAL NEOPLASM MALIGNANT FEMALE
     Dosage: ON DAYS 1, 8, 15 AND 22
     Route: 042
     Dates: start: 20171102
  3. EMACTUZUMAB. [Suspect]
     Active Substance: EMACTUZUMAB
     Indication: GENITAL NEOPLASM MALIGNANT FEMALE
     Dosage: ON DAYS 1 AND 15 EACH CYCLE
     Route: 042
     Dates: start: 20171102

REACTIONS (3)
  - Hypertension [Recovered/Resolved]
  - Blood creatine phosphokinase increased [Not Recovered/Not Resolved]
  - Blood lactate dehydrogenase increased [Not Recovered/Not Resolved]

NARRATIVE: CASE EVENT DATE: 20171109
